FAERS Safety Report 20754242 (Version 1)
Quarter: 2022Q2

REPORT INFORMATION
  Report Type: Spontaneous
  Country: US (occurrence: None)
  Receive Date: 20220426
  Receipt Date: 20220426
  Transmission Date: 20220720
  Serious: No
  Sender: FDA-Public Use
  Company Number: US-ROCHE-2902351

PATIENT
  Sex: Female

DRUGS (12)
  1. ESBRIET [Suspect]
     Active Substance: PIRFENIDONE
     Indication: Interstitial lung disease
     Route: 048
     Dates: start: 20210604
  2. VYNDAMAX [Concomitant]
     Active Substance: TAFAMIDIS
  3. VALSARTAN [Concomitant]
     Active Substance: VALSARTAN
     Dosage: 320-12.5
  4. PRAVASTATIN [Concomitant]
     Active Substance: PRAVASTATIN
  5. LIDOCAINE [Concomitant]
     Active Substance: LIDOCAINE
  6. KLOR-CON M20 [Concomitant]
     Active Substance: POTASSIUM CHLORIDE
  7. JANUVIA [Concomitant]
     Active Substance: SITAGLIPTIN PHOSPHATE
  8. FUROSEMIDE [Concomitant]
     Active Substance: FUROSEMIDE
  9. ELIQUIS [Concomitant]
     Active Substance: APIXABAN
  10. CARVEDILOL [Concomitant]
     Active Substance: CARVEDILOL
  11. AMLODIPINE BESYLATE [Concomitant]
     Active Substance: AMLODIPINE BESYLATE
  12. ALBUTEROL [Concomitant]
     Active Substance: ALBUTEROL

REACTIONS (1)
  - Ageusia [Not Recovered/Not Resolved]
